FAERS Safety Report 7562455-3 (Version None)
Quarter: 2011Q2

REPORT INFORMATION
  Report Type: 
  Country: None (occurrence: None)
  Receive Date: 20110614
  Receipt Date: 20110603
  Transmission Date: 20111010
  Serious: Yes (Hospitalization)
  Sender: FDA-Public Use
  Company Number: 2010000444

PATIENT
  Age: 53 Year
  Sex: Female

DRUGS (16)
  1. BEVACIZUMAB (BEVACIZUMAB) [Suspect]
  2. THERA PLUS VITAMINS (MULTIVITAMINS WITH MINERALS) [Concomitant]
  3. ZOFRAN [Concomitant]
  4. LORTAB (VICODIN) [Concomitant]
  5. LEVAQUIN [Concomitant]
  6. ERLOTINIB (ERLOTINIB HYDROCHLORIDE) TABLET [Suspect]
     Indication: LUNG NEOPLASM MALIGNANT
     Dosage: 50 MG, UID/QD, ORAL; ORAL
     Route: 048
     Dates: start: 20080723
  7. ERLOTINIB (ERLOTINIB HYDROCHLORIDE) TABLET [Suspect]
     Indication: LUNG NEOPLASM MALIGNANT
     Dosage: 50 MG, UID/QD, ORAL; ORAL
     Route: 048
     Dates: start: 20110418, end: 20110425
  8. BEVACIZUMAB (BEVACIZUMAB) [Suspect]
     Indication: LUNG NEOPLASM MALIGNANT
     Dosage: 15 MG/KG, Q3W, IV NOS
     Route: 042
     Dates: start: 20080723, end: 20091224
  9. MINOCYCLINE HCL [Concomitant]
  10. FENTANYL [Concomitant]
  11. PHENERGAN HCL [Concomitant]
  12. LISINOPRIL [Concomitant]
  13. CIPRO [Concomitant]
  14. ERLOTINIB (ERLOTINIB HYDROCHLORIDE) TABLET [Suspect]
  15. 4 LIFE TRANSFER FACTOR (TRANSFER FACTOR) [Concomitant]
  16. LOVENOX [Concomitant]

REACTIONS (14)
  - PERICARDIAL EFFUSION [None]
  - WHITE BLOOD CELL COUNT DECREASED [None]
  - ANGINA PECTORIS [None]
  - EJECTION FRACTION DECREASED [None]
  - PULMONARY HYPERTENSION [None]
  - GASTROOESOPHAGEAL REFLUX DISEASE [None]
  - FUNGAL SEPSIS [None]
  - DIASTOLIC DYSFUNCTION [None]
  - RASH [None]
  - DEVICE RELATED INFECTION [None]
  - BRONCHITIS VIRAL [None]
  - PLATELET COUNT DECREASED [None]
  - CANDIDIASIS [None]
  - HEART VALVE INCOMPETENCE [None]
